FAERS Safety Report 5468816-0 (Version None)
Quarter: 2007Q3

REPORT INFORMATION
  Report Type: 
  Country: None (occurrence: None)
  Receive Date: 20070926
  Receipt Date: 20070924
  Transmission Date: 20080115
  Serious: Yes (Death)
  Sender: FDA-Public Use
  Company Number: DE-BOEHRINGER INGELHEIM PHARMACEUTICALS, INC.-2007-DE-05531DE

PATIENT
  Sex: Female
  Weight: 55 kg

DRUGS (6)
  1. AGGRENOX [Suspect]
     Indication: CEREBROVASCULAR ACCIDENT
     Dosage: 400/50
     Route: 048
     Dates: start: 20070810, end: 20070909
  2. METOHEXAL [Concomitant]
     Indication: HYPERTENSION
     Route: 048
  3. METOHEXAL [Concomitant]
     Indication: CARDIAC FAILURE
  4. PHOSPHONORM [Concomitant]
     Indication: RENAL FAILURE
     Route: 048
  5. RAMIPRIL [Concomitant]
     Indication: HYPERTENSION
     Route: 048
  6. RAMIPRIL [Concomitant]
     Indication: CARDIAC FAILURE

REACTIONS (2)
  - ABDOMINAL PAIN [None]
  - INTESTINAL INFARCTION [None]
